FAERS Safety Report 7358691-1 (Version None)
Quarter: 2011Q1

REPORT INFORMATION
  Report Type: 
  Country: None (occurrence: None)
  Receive Date: 20110317
  Receipt Date: 20070514
  Transmission Date: 20110831
  Serious: Yes (Hospitalization)
  Sender: FDA-Public Use
  Company Number: A0651291A

PATIENT
  Age: 61 Year
  Sex: Male

DRUGS (2)
  1. AVANDIA [Suspect]
     Indication: DIABETES MELLITUS
     Dosage: 4MG PER DAY
     Route: 048
     Dates: start: 20000201, end: 20080401
  2. GLUCOTROL XL [Concomitant]

REACTIONS (4)
  - WEIGHT INCREASED [None]
  - HYPOGLYCAEMIA [None]
  - CEREBROVASCULAR ACCIDENT [None]
  - BLINDNESS [None]
